FAERS Safety Report 5154040-8 (Version None)
Quarter: 2006Q4

REPORT INFORMATION
  Report Type: 
  Country: None (occurrence: None)
  Receive Date: 20061120
  Receipt Date: 20061108
  Transmission Date: 20070319
  Serious: Yes (Life-Threatening, Hospitalization)
  Sender: FDA-Public Use
  Company Number: AU-ROCHE-470565

PATIENT
  Age: 68 Year
  Sex: Female
  Weight: 65 kg

DRUGS (9)
  1. CAPECITABINE [Suspect]
     Dosage: LAST DOSE DATE THIS CYCLE: 04 NOVEMBER 2006 AMOUNT AND FREQUENCY: 2500 MG/M2, DAYS 1-14, Q3WEEKLY
     Route: 048
     Dates: start: 20061101, end: 20061104
  2. BEVACIZUMAB [Suspect]
     Dosage: LAST DOSE DATE THIS CYCLE: 04 NOVEMBER 2006 AMOUNT AND FREQUENCY: 7.5 MG/KG Q3WEEKLY
     Route: 042
     Dates: start: 20061101
  3. MITOMYCIN-C BULK POWDER [Suspect]
     Dosage: LAST DOSE DATE THIS CYCLE: 04 NOVEMBER 2006 AMOUNT AND FREQUENCY: 7 MG/M2 Q6WEEKLY
     Route: 042
     Dates: start: 20061101
  4. MAXOLON [Concomitant]
     Indication: PROPHYLAXIS
     Route: 048
     Dates: start: 20061027
  5. SINEMET [Concomitant]
     Dosage: DOSE: 100/25 MG/DAY
     Route: 048
     Dates: start: 20040615
  6. AVAPRO [Concomitant]
     Indication: PROPHYLAXIS
     Dosage: DOSE: 300/12.5 MG / DAY
     Route: 048
     Dates: start: 19970515
  7. TROPISETRON [Concomitant]
     Indication: PROPHYLAXIS
     Dosage: ONE TREATMENT
     Dates: start: 20061031
  8. DEXAMETHASONE TAB [Concomitant]
     Indication: PROPHYLAXIS
     Dosage: PRE-TREATMENT
     Route: 042
     Dates: start: 20061031
  9. DEXAMETHASONE TAB [Concomitant]
     Route: 048
     Dates: start: 20061101

REACTIONS (1)
  - PERIPHERAL EMBOLISM [None]
